FAERS Safety Report 10206970 (Version 1)
Quarter: 2014Q2

REPORT INFORMATION
  Report Type: Spontaneous
  Country: US (occurrence: None)
  Receive Date: 20140527
  Receipt Date: 20140527
  Transmission Date: 20141212
  Serious: Yes (Hospitalization)
  Sender: FDA-Public Use
  Company Number: None

PATIENT
  Age: 56 Year
  Sex: Male

DRUGS (18)
  1. ABIRATERONE [Suspect]
     Indication: NEOPLASM MALIGNANT
     Route: 048
     Dates: end: 20120613
  2. ALENDRONATE [Concomitant]
  3. LEUPROLIDE [Concomitant]
  4. ASPIRIN [Concomitant]
  5. CALCIUM CARBONATE/VITAMIN D [Concomitant]
  6. HYDROCORTISONE [Concomitant]
  7. INSULIN ASPART [Concomitant]
  8. INSULIN GLARGINE [Concomitant]
  9. METFORMIN [Concomitant]
  10. NAPROXEN [Concomitant]
  11. OMESARTAN [Concomitant]
  12. FISH OIL [Concomitant]
  13. OMEPRAZOLE [Concomitant]
  14. ONDANSETRON [Concomitant]
  15. POLYETHYLENE GLYCOL 3350 [Concomitant]
  16. ROSUVASTATIN [Concomitant]
  17. TAMSULOSIN [Concomitant]
  18. TRIAMCINOLONE ACETONIDE [Concomitant]

REACTIONS (3)
  - Hypertensive emergency [None]
  - Nausea [None]
  - Vomiting [None]
